FAERS Safety Report 8120177-4 (Version None)
Quarter: 2012Q1

REPORT INFORMATION
  Report Type: 
  Country: None (occurrence: None)
  Receive Date: 20120207
  Receipt Date: 20120126
  Transmission Date: 20120608
  Serious: Yes (Other)
  Sender: FDA-Public Use
  Company Number: BR-ELI_LILLY_AND_COMPANY-BR201112006415

PATIENT
  Sex: Female
  Weight: 65 kg

DRUGS (6)
  1. HUMALOG [Suspect]
     Dosage: UNK, UNKNOWN
     Route: 065
     Dates: start: 20010101
  2. ALISKIREN [Concomitant]
     Dosage: UNK, UNKNOWN
     Route: 065
  3. HUMALOG [Suspect]
     Indication: TYPE 1 DIABETES MELLITUS
     Dosage: UNK, UNKNOWN
     Route: 065
     Dates: start: 20111209
  4. HUMALOG [Suspect]
     Dosage: UNK, UNKNOWN
     Route: 065
  5. SAXAGLIPTIN [Concomitant]
     Dosage: UNK, UNKNOWN
     Route: 065
  6. LANTUS [Concomitant]
     Dosage: UNK, UNKNOWN
     Route: 065

REACTIONS (6)
  - HEADACHE [None]
  - DRUG DOSE OMISSION [None]
  - HYPOGLYCAEMIA [None]
  - APHAGIA [None]
  - BLOOD GLUCOSE INCREASED [None]
  - MALAISE [None]
